FAERS Safety Report 24199906 (Version 3)
Quarter: 2024Q4

REPORT INFORMATION
  Report Type: Report from Study
  Country: JP (occurrence: JP)
  Receive Date: 20240812
  Receipt Date: 20241210
  Transmission Date: 20250114
  Serious: Yes (Disabling)
  Sender: SHIONOGI
  Company Number: JP-shionogi-202406190_FTR_P_1

PATIENT
  Age: 0 Year
  Sex: Male
  Weight: 4.9 kg

DRUGS (7)
  1. CEFIDEROCOL [Suspect]
     Active Substance: CEFIDEROCOL
     Indication: Urinary tract infection
     Route: 041
     Dates: start: 20240615, end: 20240620
  2. AMIKACIN SULFATE [Suspect]
     Active Substance: AMIKACIN SULFATE
     Indication: Urinary tract infection
     Route: 065
     Dates: start: 20240612, end: 20240619
  3. AMIKACIN SULFATE [Suspect]
     Active Substance: AMIKACIN SULFATE
     Route: 065
     Dates: start: 20240621, end: 20240626
  4. FERRIC PYROPHOSPHATE [Concomitant]
     Active Substance: FERRIC PYROPHOSPHATE
     Indication: Product used for unknown indication
     Dosage: SINCE BEFORE THE ADMINISTRATION OF FETROJA
     Route: 048
  5. MIYA-BM [Concomitant]
     Active Substance: CLOSTRIDIUM BUTYRICUM SPORES STRAIN M-55
     Indication: Prophylaxis
     Route: 048
     Dates: start: 20240617, end: 20240626
  6. MIYA-BM [Concomitant]
     Active Substance: CLOSTRIDIUM BUTYRICUM SPORES STRAIN M-55
     Indication: Diarrhoea
  7. MENATETRENONE [Concomitant]
     Active Substance: MENATETRENONE
     Indication: Product used for unknown indication
     Dosage: SINCE BEFORE THE ADMINISTRATION OF FETROJA
     Route: 048

REACTIONS (3)
  - Renal impairment [Unknown]
  - Diarrhoea [Recovering/Resolving]
  - Product administered to patient of inappropriate age [Unknown]

NARRATIVE: CASE EVENT DATE: 20240617
